FAERS Safety Report 5451139-3 (Version None)
Quarter: 2007Q3

REPORT INFORMATION
  Report Type: 
  Country: None (occurrence: None)
  Receive Date: 20070913
  Receipt Date: 20070907
  Transmission Date: 20080115
  Serious: Yes (Hospitalization)
  Sender: FDA-Public Use
  Company Number: DE-BAYER-200711001BVD

PATIENT
  Age: 71 Year
  Sex: Male
  Weight: 66 kg

DRUGS (9)
  1. SORAFENIB [Suspect]
     Indication: RENAL CELL CARCINOMA STAGE UNSPECIFIED
     Dosage: TOTAL DAILY DOSE: 800 MG
     Route: 048
     Dates: start: 20070109
  2. LACTULOSE [Concomitant]
     Route: 048
     Dates: start: 20050101
  3. VALORON [Concomitant]
     Route: 065
     Dates: start: 20040101
  4. ZOMETA [Concomitant]
     Route: 065
     Dates: start: 20030101
  5. CALCITRIOL [Concomitant]
     Route: 065
     Dates: start: 20060825
  6. PHOSEX [Concomitant]
     Route: 065
     Dates: start: 20060825
  7. MANYPER [Concomitant]
     Route: 065
     Dates: start: 20030101
  8. FUCIDINE [Concomitant]
     Route: 065
     Dates: start: 20060901
  9. PARACETAMOL [Concomitant]
     Route: 065
     Dates: start: 20070201

REACTIONS (1)
  - PULMONARY EMBOLISM [None]
